FAERS Safety Report 9658080 (Version 4)
Quarter: 2014Q1

REPORT INFORMATION
  Report Type: Report from Study
  Country: GB (occurrence: GB)
  Receive Date: 20131030
  Receipt Date: 20140121
  Transmission Date: 20141002
  Serious: Yes (Hospitalization, Other)
  Sender: FDA-Public Use
  Company Number: GB-ABBVIE-13P-167-1116501-00

PATIENT
  Sex: Male

DRUGS (5)
  1. HUMIRA [Suspect]
     Indication: RHEUMATOID ARTHRITIS
     Route: 050
  2. GLICLAZIDE [Concomitant]
     Indication: DIABETES MELLITUS
     Dosage: UNKNOWN
  3. INSULIN [Concomitant]
     Indication: DIABETES MELLITUS
     Dosage: 18 UNITS AM AND 14 UNITS PM
  4. METFORMIN [Concomitant]
     Indication: DIABETES MELLITUS
     Dosage: NOT KNOWN
     Route: 065
  5. AMLODIPINE [Concomitant]
     Indication: HYPERTENSION
     Dosage: NOT KNOWN
     Route: 065

REACTIONS (22)
  - Spinal osteoarthritis [Unknown]
  - Kidney infection [Recovering/Resolving]
  - Asthenia [Unknown]
  - Pyrexia [Unknown]
  - Influenza like illness [Not Recovered/Not Resolved]
  - Infection [Not Recovered/Not Resolved]
  - Weight decreased [Not Recovered/Not Resolved]
  - Headache [Not Recovered/Not Resolved]
  - Dizziness [Not Recovered/Not Resolved]
  - Decreased appetite [Not Recovered/Not Resolved]
  - Pollakiuria [Not Recovered/Not Resolved]
  - Intervertebral discitis [Unknown]
  - Fall [Recovering/Resolving]
  - Lumbar vertebral fracture [Recovering/Resolving]
  - Blood pressure increased [Recovering/Resolving]
  - Blood glucose increased [Recovering/Resolving]
  - Balance disorder [Recovering/Resolving]
  - Pain [Recovering/Resolving]
  - Pain [Recovering/Resolving]
  - Anxiety [Recovering/Resolving]
  - Arthropathy [Recovered/Resolved]
  - Lethargy [Recovered/Resolved]
